FAERS Safety Report 17530300 (Version 1)
Quarter: 2020Q1

REPORT INFORMATION
  Report Type: Spontaneous
  Country: US (occurrence: US)
  Receive Date: 20200312
  Receipt Date: 20200312
  Transmission Date: 20200409
  Serious: No
  Sender: FDA-Public Use
  Company Number: US-GW PHARMA-202003USGW00863

PATIENT

DRUGS (1)
  1. EPIDIOLEX [Suspect]
     Active Substance: CANNABIDIOL
     Indication: EPILEPSY
     Dosage: 18.518 MG/KG/DAY, 500 MILLIGRAM, BID
     Route: 048

REACTIONS (2)
  - Tardive dyskinesia [Unknown]
  - Seizure [Unknown]
